FAERS Safety Report 16733713 (Version 1)
Quarter: 2019Q3

REPORT INFORMATION
  Report Type: Report from Study
  Country: None (occurrence: US)
  Receive Date: 20190823
  Receipt Date: 20190823
  Transmission Date: 20191005
  Serious: Yes (Hospitalization, Other)
  Sender: FDA-Public Use
  Company Number: US-ABBVIE-19K-163-2892237-00

PATIENT
  Age: 66 Year
  Sex: Female
  Weight: 45.3 kg

DRUGS (2)
  1. CREON [Suspect]
     Active Substance: PANCRELIPASE AMYLASE\PANCRELIPASE LIPASE\PANCRELIPASE PROTEASE
     Dosage: TWO CAPSULES WITH EACH MEAL THREE TIMES A DAY AND ONE CAPSULE WITH SNACK
     Route: 048
     Dates: start: 201907
  2. CREON [Suspect]
     Active Substance: PANCRELIPASE AMYLASE\PANCRELIPASE LIPASE\PANCRELIPASE PROTEASE
     Indication: PANCREATIC FAILURE
     Dosage: TWO CAPSULES WITH EACH MEAL THREE TIMES A DAY AND ONE CAPSULE WITH SNACK
     Route: 048
     Dates: start: 201903, end: 20190628

REACTIONS (4)
  - Pneumoperitoneum [Recovering/Resolving]
  - Hospitalisation [Recovered/Resolved]
  - Tumour marker increased [Unknown]
  - Cholangiocarcinoma [Recovering/Resolving]

NARRATIVE: CASE EVENT DATE: 20190628
